FAERS Safety Report 19233257 (Version 1)
Quarter: 2021Q2

REPORT INFORMATION
  Report Type: Spontaneous
  Country: CN (occurrence: CN)
  Receive Date: 20210507
  Receipt Date: 20210507
  Transmission Date: 20210717
  Serious: Yes (Other)
  Sender: FDA-Public Use
  Company Number: CN-ASTRAZENECA-2021A395210

PATIENT
  Age: 29567 Day
  Sex: Female
  Weight: 73 kg

DRUGS (2)
  1. BUDESONIDE. [Suspect]
     Active Substance: BUDESONIDE
     Indication: BRONCHITIS CHRONIC
     Route: 055
     Dates: start: 20210428, end: 20210428
  2. SODIUM CHLORIDE. [Concomitant]
     Active Substance: SODIUM CHLORIDE
     Indication: BRONCHITIS CHRONIC
     Route: 055
     Dates: start: 20210428, end: 20210428

REACTIONS (3)
  - Pallor [Recovered/Resolved]
  - Cyanosis [Recovered/Resolved]
  - Loss of consciousness [Recovered/Resolved]

NARRATIVE: CASE EVENT DATE: 20210428
